FAERS Safety Report 12789680 (Version 2)
Quarter: 2016Q4

REPORT INFORMATION
  Report Type: Spontaneous
  Country: US (occurrence: US)
  Receive Date: 20160928
  Receipt Date: 20161013
  Transmission Date: 20170207
  Serious: Yes (Life-Threatening, Hospitalization, Disabling)
  Sender: FDA-Public Use
  Company Number: US-009507513-1609USA010291

PATIENT
  Age: 70 Year
  Sex: Male

DRUGS (6)
  1. PROVENTIL [Concomitant]
     Active Substance: ALBUTEROL
  2. TYLENOL [Concomitant]
     Active Substance: ACETAMINOPHEN
  3. CUBICIN RF [Suspect]
     Active Substance: DAPTOMYCIN
     Indication: OSTEOMYELITIS
     Dosage: 720 MG, DAILY
     Route: 042
     Dates: start: 20160824, end: 20160918
  4. CUBICIN RF [Suspect]
     Active Substance: DAPTOMYCIN
     Indication: PSEUDOMONAS INFECTION
  5. ARANESP [Concomitant]
     Active Substance: DARBEPOETIN ALFA
     Dosage: 100 MICROGRAM PER WEEK
  6. VANCOMYCIN [Concomitant]
     Active Substance: VANCOMYCIN
     Route: 048

REACTIONS (4)
  - Drug resistance [Unknown]
  - Adverse event [Unknown]
  - Product use issue [Unknown]
  - Incorrect product storage [Unknown]

NARRATIVE: CASE EVENT DATE: 2016
